FAERS Safety Report 25833532 (Version 2)
Quarter: 2025Q4

REPORT INFORMATION
  Report Type: Spontaneous
  Country: EU (occurrence: EU)
  Receive Date: 20250922
  Receipt Date: 20251014
  Transmission Date: 20260117
  Serious: Yes (Other)
  Sender: NOVO NORDISK
  Company Number: EU-NOVOPROD-1521031

PATIENT
  Age: 58 Year
  Sex: Female
  Weight: 80 kg

DRUGS (1)
  1. WEGOVY [Suspect]
     Active Substance: SEMAGLUTIDE
     Indication: Overweight
     Dosage: 0.25 MG, QW
     Dates: start: 20250814

REACTIONS (4)
  - Facial paralysis [Unknown]
  - Facial pain [Unknown]
  - Swelling face [Unknown]
  - Noninfective sialoadenitis [Unknown]

NARRATIVE: CASE EVENT DATE: 20250907
